FAERS Safety Report 14456291 (Version 2)
Quarter: 2018Q2

REPORT INFORMATION
  Report Type: Spontaneous
  Country: FR (occurrence: FR)
  Receive Date: 20180130
  Receipt Date: 20180514
  Transmission Date: 20180711
  Serious: Yes (Other)
  Sender: FDA-Public Use
  Company Number: FR-MERCK KGAA-2041031

PATIENT
  Age: 81 Year
  Sex: Female
  Weight: 70 kg

DRUGS (1)
  1. NOVOTHYROX [Suspect]
     Active Substance: LEVOTHYROXINE SODIUM
     Indication: HYPOTHYROIDISM
     Route: 048
     Dates: start: 20170507, end: 20170929

REACTIONS (5)
  - Gastrointestinal disorder [Recovering/Resolving]
  - Atrial flutter [Recovering/Resolving]
  - Balance disorder [Recovering/Resolving]
  - Myalgia [Recovering/Resolving]
  - Fatigue [Recovering/Resolving]

NARRATIVE: CASE EVENT DATE: 20170817
